FAERS Safety Report 23123740 (Version 1)
Quarter: 2023Q4

REPORT INFORMATION
  Report Type: Spontaneous
  Country: CN (occurrence: CN)
  Receive Date: 20231030
  Receipt Date: 20231030
  Transmission Date: 20240110
  Serious: Yes (Life-Threatening, Other)
  Sender: FDA-Public Use
  Company Number: None

PATIENT
  Age: 47 Year
  Sex: Female
  Weight: 74 kg

DRUGS (6)
  1. CYCLOPHOSPHAMIDE [Suspect]
     Active Substance: CYCLOPHOSPHAMIDE
     Indication: Breast cancer female
     Dosage: 900 MG, ONE TIME IN ONE DAY (ST), DILUTED WITH 100 ML OF 0.9% SODIUM CHLORIDE, ADJUVANT CHEMOTHERAPY
     Route: 041
     Dates: start: 20231001, end: 20231001
  2. CYCLOPHOSPHAMIDE [Suspect]
     Active Substance: CYCLOPHOSPHAMIDE
     Indication: Chemotherapy
  3. SODIUM CHLORIDE [Suspect]
     Active Substance: SODIUM CHLORIDE
     Indication: Medication dilution
     Dosage: 100 ML, ONE TIME IN ONE DAY, USED TO DILUTE 900 MG OF CYCLOPHOSPHAMIDE FOR INJECTION
     Route: 041
     Dates: start: 20231001, end: 20231001
  4. SODIUM CHLORIDE [Suspect]
     Active Substance: SODIUM CHLORIDE
     Dosage: 250 ML, ONE TIME IN ONE DAY (ST), USED TO DILUTE 110 MG OF DOCETAXEL
     Route: 041
     Dates: start: 20231001, end: 20231001
  5. DOCETAXEL [Suspect]
     Active Substance: DOCETAXEL
     Indication: Breast cancer female
     Dosage: 110 MG, ONE TIME IN ONE DAY (ST), DILUTED WITH 250 ML OF 0.9% SODIUM CHLORIDE, ADJUVANT CHEMOTHERAPY
     Route: 041
     Dates: start: 20231001, end: 20231001
  6. DOCETAXEL [Suspect]
     Active Substance: DOCETAXEL
     Indication: Chemotherapy

REACTIONS (1)
  - Myelosuppression [Recovered/Resolved]

NARRATIVE: CASE EVENT DATE: 20231021
